FAERS Safety Report 9996449 (Version 1)
Quarter: 2014Q1

REPORT INFORMATION
  Report Type: Spontaneous
  Country: US (occurrence: None)
  Receive Date: 20140218
  Receipt Date: 20140218
  Transmission Date: 20141002
  Serious: No
  Sender: FDA-Public Use
  Company Number: 1000052354

PATIENT
  Age: 40 Year
  Sex: Female

DRUGS (2)
  1. VIIBRYD [Suspect]
     Indication: DEPRESSION
     Route: 048
     Dates: start: 20131216
  2. VIIBRYD [Suspect]
     Indication: ANXIETY
     Route: 048
     Dates: start: 20131216

REACTIONS (2)
  - Nausea [None]
  - Off label use [None]
